FAERS Safety Report 10935953 (Version 2)
Quarter: 2015Q2

REPORT INFORMATION
  Report Type: Report from Study
  Country: US (occurrence: US)
  Receive Date: 20150320
  Receipt Date: 20150622
  Transmission Date: 20150821
  Serious: No
  Sender: FDA-Public Use
  Company Number: US-ABBVIE-15P-163-1362815-00

PATIENT
  Age: 56 Year
  Sex: Male
  Weight: 90.8 kg

DRUGS (2)
  1. VIEKIRA PAK [Suspect]
     Active Substance: DASABUVIR\OMBITASVIR\PARITAPREVIR\RITONAVIR
     Indication: CHRONIC HEPATITIS C
     Dosage: 3 IN AM AND 1 IN EVENING
     Route: 048
     Dates: start: 20150310
  2. RIBAVIRIN. [Suspect]
     Active Substance: RIBAVIRIN
     Indication: CHRONIC HEPATITIS C
     Dosage: 1 PILL IN AM AND 1 IN EVENING, BLUE PILL
     Route: 048
     Dates: start: 20150310

REACTIONS (6)
  - Diarrhoea [Not Recovered/Not Resolved]
  - Viral infection [Not Recovered/Not Resolved]
  - Headache [Not Recovered/Not Resolved]
  - Fatigue [Not Recovered/Not Resolved]
  - Hyperacusis [Not Recovered/Not Resolved]
  - Social avoidant behaviour [Recovering/Resolving]

NARRATIVE: CASE EVENT DATE: 201503
